FAERS Safety Report 13189937 (Version 2)
Quarter: 2017Q1

REPORT INFORMATION
  Report Type: Spontaneous
  Country: US (occurrence: US)
  Receive Date: 20170206
  Receipt Date: 20170315
  Transmission Date: 20170428
  Serious: No
  Sender: FDA-Public Use
  Company Number: US-PFIZER INC-2017047286

PATIENT
  Age: 63 Year
  Sex: Male
  Weight: 118 kg

DRUGS (2)
  1. GENOTROPIN [Suspect]
     Active Substance: SOMATROPIN
     Dosage: 0.2 MG, DAILY
     Route: 058
     Dates: start: 201608
  2. GENOTROPIN [Suspect]
     Active Substance: SOMATROPIN
     Indication: GROWTH HORMONE DEFICIENCY
     Dosage: 0.2 MG, UNK
     Dates: start: 2016

REACTIONS (4)
  - Product quality issue [Unknown]
  - Weight decreased [Unknown]
  - Accidental overdose [Recovering/Resolving]
  - Incorrect dose administered by device [Unknown]

NARRATIVE: CASE EVENT DATE: 201701
